FAERS Safety Report 7493790-5 (Version None)
Quarter: 2011Q2

REPORT INFORMATION
  Report Type: 
  Country: None (occurrence: None)
  Receive Date: 20110520
  Receipt Date: 20110203
  Transmission Date: 20111010
  Serious: Yes (Hospitalization)
  Sender: FDA-Public Use
  Company Number: US-ASTRAZENECA-2011SE06001

PATIENT
  Age: 80 Year
  Sex: Female

DRUGS (2)
  1. COUMADIN [Concomitant]
     Route: 065
  2. VIMOVO [Suspect]
     Route: 048

REACTIONS (1)
  - GASTROINTESTINAL HAEMORRHAGE [None]
